FAERS Safety Report 15423964 (Version 1)
Quarter: 2018Q3

REPORT INFORMATION
  Report Type: Spontaneous
  Country: DE (occurrence: DE)
  Receive Date: 20180925
  Receipt Date: 20180925
  Transmission Date: 20181010
  Serious: Yes (Other)
  Sender: FDA-Public Use
  Company Number: DE-BAUSCH-BL-2018-025697

PATIENT
  Sex: Female

DRUGS (1)
  1. TIMO EDO 0.5% [Suspect]
     Active Substance: TIMOLOL MALEATE
     Indication: PRODUCT USED FOR UNKNOWN INDICATION
     Route: 047
     Dates: start: 2018

REACTIONS (14)
  - Loss of consciousness [Unknown]
  - Road traffic accident [Unknown]
  - Speech disorder [Unknown]
  - Disturbance in attention [Unknown]
  - Dizziness [Unknown]
  - Syncope [Unknown]
  - Amnesia [Unknown]
  - Diplopia [Unknown]
  - Muscular weakness [Unknown]
  - Muscle spasms [Unknown]
  - Feeling cold [Unknown]
  - Nipple pain [Unknown]
  - Insomnia [Unknown]
  - Peripheral coldness [Unknown]

NARRATIVE: CASE EVENT DATE: 2018
